FAERS Safety Report 7888502-7 (Version None)
Quarter: 2011Q4

REPORT INFORMATION
  Report Type: 
  Country: None (occurrence: None)
  Receive Date: 20111103
  Receipt Date: 20111028
  Transmission Date: 20120403
  Serious: Yes (Other)
  Sender: FDA-Public Use
  Company Number: DE-B.I. PHARMACEUTICALS,INC./RIDGEFIELD-2011-DE-04962DE

PATIENT
  Age: 77 Year
  Sex: Female
  Weight: 48 kg

DRUGS (3)
  1. PRADAXA [Suspect]
     Dosage: 110 MG
  2. AMIODARONE HCL [Concomitant]
  3. PRADAXA [Suspect]
     Indication: ATRIAL FIBRILLATION
     Dosage: 2 ANZ

REACTIONS (3)
  - GASTROINTESTINAL HAEMORRHAGE [None]
  - THROMBIN TIME PROLONGED [None]
  - CREATININE RENAL CLEARANCE DECREASED [None]
